FAERS Safety Report 4694181-2 (Version None)
Quarter: 2005Q2

REPORT INFORMATION
  Report Type: 
  Country: None (occurrence: None)
  Receive Date: 20050614
  Receipt Date: 20050216
  Transmission Date: 20051028
  Serious: No
  Sender: FDA-Public Use
  Company Number: USA050290942

PATIENT
  Age: 78 Year
  Sex: Male

DRUGS (6)
  1. CIALIS [Suspect]
     Indication: ERECTILE DYSFUNCTION
     Dosage: 20 MG
     Dates: start: 20050214
  2. GLUCOPHAGE [Concomitant]
  3. METOPROLOL [Concomitant]
  4. ASPIRIN [Concomitant]
  5. SULAR [Concomitant]
  6. QUESTOR [Concomitant]

REACTIONS (1)
  - THERAPEUTIC RESPONSE DECREASED [None]
